FAERS Safety Report 26087045 (Version 1)
Quarter: 2025Q4

REPORT INFORMATION
  Report Type: Spontaneous
  Country: JP (occurrence: JP)
  Receive Date: 20251125
  Receipt Date: 20251125
  Transmission Date: 20260117
  Serious: Yes (Other)
  Sender: RANBAXY
  Company Number: JP-SUN PHARMACEUTICAL INDUSTRIES LTD-2025RR-536729

PATIENT
  Age: 37 Year
  Sex: Male

DRUGS (7)
  1. DASATINIB [Suspect]
     Active Substance: DASATINIB
     Indication: Chronic myeloid leukaemia
     Dosage: 80 MILLIGRAM, DAILY
     Route: 065
  2. IMATINIB [Suspect]
     Active Substance: IMATINIB
     Indication: Chronic myeloid leukaemia
     Dosage: 200 MILLIGRAM, DAILY
     Route: 065
  3. IMATINIB [Suspect]
     Active Substance: IMATINIB
     Dosage: 300 MILLIGRAM, DAILY
  4. BOSUTINIB [Suspect]
     Active Substance: BOSUTINIB
     Indication: Chronic myeloid leukaemia
     Dosage: 100 MILLIGRAM, DAILY
     Route: 065
  5. BOSUTINIB [Suspect]
     Active Substance: BOSUTINIB
     Dosage: 400 MILLIGRAM, DAILY
     Route: 065
  6. BOSUTINIB [Suspect]
     Active Substance: BOSUTINIB
     Dosage: 300 MILLIGRAM, DAILY
     Route: 065
  7. NILOTINIB [Suspect]
     Active Substance: NILOTINIB
     Indication: Chronic myeloid leukaemia
     Dosage: 300 MILLIGRAM, TID
     Route: 065

REACTIONS (14)
  - Cardiac failure congestive [Unknown]
  - Renal impairment [Unknown]
  - Pleural effusion [Unknown]
  - Intestinal haemorrhage [Unknown]
  - Nausea [Unknown]
  - Vomiting [Unknown]
  - Hyperlipidaemia [Unknown]
  - Gastrointestinal disorder [Unknown]
  - Pulmonary hypertension [Unknown]
  - Cerebral haemorrhage [Unknown]
  - Ankle brachial index decreased [Unknown]
  - Electrocardiogram QT prolonged [Unknown]
  - Drug ineffective [Unknown]
  - Atrial fibrillation [Unknown]
